FAERS Safety Report 7721771-2 (Version None)
Quarter: 2011Q3

REPORT INFORMATION
  Report Type: 
  Country: None (occurrence: None)
  Receive Date: 20110831
  Receipt Date: 20110818
  Transmission Date: 20111222
  Serious: Yes (Hospitalization, Other)
  Sender: FDA-Public Use
  Company Number: BR-ELI_LILLY_AND_COMPANY-BR201108006028

PATIENT
  Sex: Female
  Weight: 52 kg

DRUGS (8)
  1. FORTEO [Suspect]
     Indication: OSTEOPOROSIS
     Dosage: 20 UG, QD
     Route: 058
     Dates: start: 20101101, end: 20110426
  2. MANTIDAN [Concomitant]
     Dosage: UNK, UNKNOWN
     Route: 065
  3. RISPERIDONA [Concomitant]
     Dosage: UNK, UNKNOWN
     Route: 065
  4. PROLOPA [Concomitant]
     Dosage: UNK, UNKNOWN
     Route: 065
  5. TRAZODONE HYDROCHLORIDE [Concomitant]
     Dosage: UNK, UNKNOWN
     Route: 065
  6. PROPRANOLOL [Concomitant]
     Dosage: UNK, UNKNOWN
     Route: 065
  7. PRAMIPEXOLE DIHYDROCHLORIDE [Concomitant]
     Dosage: UNK, UNKNOWN
     Route: 065
  8. SERTRALINA [Concomitant]
     Dosage: UNK, UNKNOWN
     Route: 065

REACTIONS (4)
  - NERVE COMPRESSION [None]
  - SCIATIC NERVE INJURY [None]
  - MOBILITY DECREASED [None]
  - HEPATITIS [None]
